FAERS Safety Report 7982683-2 (Version None)
Quarter: 2011Q4

REPORT INFORMATION
  Report Type: 
  Country: None (occurrence: None)
  Receive Date: 20111215
  Receipt Date: 20111101
  Transmission Date: 20120403
  Serious: Yes (Hospitalization)
  Sender: FDA-Public Use
  Company Number: JP-ROCHE-798262

PATIENT
  Sex: Male
  Weight: 71 kg

DRUGS (11)
  1. MORPHINE HYDROCHLORIDE [Concomitant]
     Dosage: DRUG: MORPHINE HYDROCHLORIDE HYDRATE(MORPHINE HYDROCHLORIDE HYDRATE); DOSAGE IS UNCERTAIN
     Route: 065
  2. CARBOPLATIN [Suspect]
     Indication: LUNG ADENOCARCINOMA METASTATIC
     Dosage: DOSAGE IS UNCERTAIN
     Route: 041
     Dates: start: 20110801, end: 20110801
  3. DECADRON PHOSPHATE [Concomitant]
     Dosage: DOSE: 4.95
     Route: 042
     Dates: start: 20110801, end: 20110801
  4. OMEPRAZOLE [Concomitant]
     Indication: PROPHYLAXIS
     Dosage: DOSE: 20
     Route: 048
     Dates: start: 20110727
  5. AVASTIN [Suspect]
     Indication: LUNG ADENOCARCINOMA METASTATIC
     Route: 041
     Dates: start: 20110801, end: 20110801
  6. ALOXI [Concomitant]
     Dosage: DOSE: 0.75
     Route: 042
     Dates: start: 20110801, end: 20110801
  7. ALIMTA [Suspect]
     Indication: LUNG ADENOCARCINOMA METASTATIC
     Dosage: DRUG:ALIMTA(PEMETREXED SODIUM HYDRATE); DOSAGE IS UNCERTAIN
     Route: 041
     Dates: start: 20110801, end: 20110801
  8. AVAPRO [Concomitant]
     Indication: HYPERTENSION
     Route: 048
  9. FENTANYL CITRATE [Concomitant]
     Indication: CANCER PAIN
     Dosage: DOSE: 5
     Route: 062
  10. CEPHADOL [Concomitant]
     Indication: PROPHYLAXIS
     Dosage: DOSE: 25
     Route: 048
  11. TIZANIDINE HCL [Concomitant]
     Indication: PROPHYLAXIS
     Dosage: DOSE: 1
     Route: 048

REACTIONS (3)
  - CHOLECYSTITIS ACUTE [None]
  - VENOUS THROMBOSIS LIMB [None]
  - SEPTIC SHOCK [None]
